FAERS Safety Report 20998398 (Version 2)
Quarter: 2022Q2

REPORT INFORMATION
  Report Type: Spontaneous
  Country: US (occurrence: US)
  Receive Date: 20220623
  Receipt Date: 20220628
  Transmission Date: 20220721
  Serious: Yes (Hospitalization, Other)
  Sender: FDA-Public Use
  Company Number: US-PFIZER INC-202101058003

PATIENT
  Age: 61 Year
  Sex: Female

DRUGS (1)
  1. INLYTA [Suspect]
     Active Substance: AXITINIB
     Indication: Renal cancer
     Dosage: 5 MG, ONCE DAILY
     Dates: start: 20210813

REACTIONS (6)
  - Incarcerated hernia [Unknown]
  - Off label use [Unknown]
  - Oral pain [Unknown]
  - Chapped lips [Unknown]
  - Toothache [Unknown]
  - Retching [Unknown]

NARRATIVE: CASE EVENT DATE: 20210813
